FAERS Safety Report 18300424 (Version 1)
Quarter: 2020Q3

REPORT INFORMATION
  Report Type: Spontaneous
  Country: US (occurrence: US)
  Receive Date: 20200923
  Receipt Date: 20200923
  Transmission Date: 20201103
  Serious: Yes (Hospitalization)
  Sender: FDA-Public Use
  Company Number: None

PATIENT
  Age: 73 Year
  Sex: Female
  Weight: 88 kg

DRUGS (1)
  1. DABIGATRAN (DABIGATRAN ETEXILATE 150MG CAP, ORAL) [Suspect]
     Active Substance: DABIGATRAN
     Indication: ATRIAL FIBRILLATION
     Route: 048
     Dates: start: 20140929, end: 20200514

REACTIONS (5)
  - Diverticulitis [None]
  - Self-medication [None]
  - Therapy interrupted [None]
  - Gastrointestinal haemorrhage [None]
  - Packed red blood cell transfusion [None]

NARRATIVE: CASE EVENT DATE: 20200610
